FAERS Safety Report 12914818 (Version 1)
Quarter: 2016Q4

REPORT INFORMATION
  Report Type: Spontaneous
  Country: US (occurrence: US)
  Receive Date: 20161106
  Receipt Date: 20161106
  Transmission Date: 20170207
  Serious: No
  Sender: FDA-Public Use
  Company Number: US-RELYPSA-RLY2016002119

PATIENT
  Sex: Female

DRUGS (7)
  1. VELTASSA [Suspect]
     Active Substance: PATIROMER
     Indication: HYPERKALAEMIA
     Dosage: 8.4 G, QD
     Route: 048
  2. AMARYL [Concomitant]
     Active Substance: GLIMEPIRIDE
  3. RENVELA [Concomitant]
     Active Substance: SEVELAMER CARBONATE
  4. NOVOLIN [Concomitant]
     Active Substance: INSULIN HUMAN
  5. NIFEDIPINE. [Concomitant]
     Active Substance: NIFEDIPINE
  6. TYLENOL 8 HR [Concomitant]
     Active Substance: ACETAMINOPHEN
  7. SENSIPAR [Concomitant]
     Active Substance: CINACALCET HYDROCHLORIDE

REACTIONS (1)
  - Diarrhoea [Unknown]
